FAERS Safety Report 5802819-9 (Version None)
Quarter: 2008Q2

REPORT INFORMATION
  Report Type: 
  Country: None (occurrence: None)
  Receive Date: 20080627
  Receipt Date: 20080618
  Transmission Date: 20081010
  Serious: Yes (Other)
  Sender: FDA-Public Use
  Company Number: PHEH2008US02961

PATIENT
  Age: 75 Year
  Sex: Female
  Weight: 75.7 kg

DRUGS (10)
  1. RECLAST [Suspect]
     Indication: OSTEOPOROSIS POSTMENOPAUSAL
     Dosage: 5 MG, INTRAVENOUS
     Route: 042
     Dates: start: 20071101, end: 20071101
  2. NEURONTIN [Concomitant]
  3. OXYCONTIN [Concomitant]
  4. PERCOCET [Concomitant]
  5. VALIUM [Concomitant]
  6. PROTONIX [Concomitant]
  7. DIOVAN [Concomitant]
  8. LASIX [Concomitant]
  9. ZETIA [Concomitant]
  10. CYMBALTA [Concomitant]

REACTIONS (20)
  - ABDOMINAL PAIN LOWER [None]
  - ABDOMINAL PAIN UPPER [None]
  - BONE DISORDER [None]
  - CHEST DISCOMFORT [None]
  - DIZZINESS [None]
  - DRY MOUTH [None]
  - DYSPHONIA [None]
  - FATIGUE [None]
  - GINGIVAL DISORDER [None]
  - HEADACHE [None]
  - INFLUENZA LIKE ILLNESS [None]
  - OEDEMA MOUTH [None]
  - OEDEMA PERIPHERAL [None]
  - OSTEONECROSIS [None]
  - PAIN [None]
  - PRURITUS [None]
  - PYREXIA [None]
  - RASH [None]
  - RED BLOOD CELL SEDIMENTATION RATE INCREASED [None]
  - TOOTH LOSS [None]
